FAERS Safety Report 7067419-4 (Version None)
Quarter: 2010Q4

REPORT INFORMATION
  Report Type: 
  Country: None (occurrence: None)
  Receive Date: 20101028
  Receipt Date: 20101026
  Transmission Date: 20110411
  Serious: No
  Sender: FDA-Public Use
  Company Number: US-ROXANE LABORATORIES, INC.-2010-RO-01273RO

PATIENT
  Sex: Female

DRUGS (1)
  1. MORPHINE [Suspect]
     Indication: NEURALGIA
     Route: 048

REACTIONS (2)
  - BURNING SENSATION [None]
  - PAIN [None]
